FAERS Safety Report 24294155 (Version 2)
Quarter: 2025Q3

REPORT INFORMATION
  Report Type: Spontaneous
  Country: US (occurrence: US)
  Receive Date: 20240906
  Receipt Date: 20250905
  Transmission Date: 20251020
  Serious: No
  Sender: DOMPE FARMACEUTICI
  Company Number: US-FARMAPROD-202308-202405-1906

PATIENT
  Sex: Male

DRUGS (10)
  1. OXERVATE [Suspect]
     Active Substance: CENEGERMIN-BKBJ
     Indication: Neurotrophic keratopathy
     Route: 047
     Dates: start: 20240508
  2. OXERVATE [Suspect]
     Active Substance: CENEGERMIN-BKBJ
  3. OXERVATE [Suspect]
     Active Substance: CENEGERMIN-BKBJ
     Route: 047
     Dates: start: 20240729, end: 20240924
  4. OXERVATE [Suspect]
     Active Substance: CENEGERMIN-BKBJ
     Route: 047
     Dates: start: 20250123
  5. HUMULIN 70/30 [Concomitant]
     Active Substance: INSULIN HUMAN
  6. SIMVASTATIN [Concomitant]
     Active Substance: SIMVASTATIN
  7. JARDIANCE [Concomitant]
     Active Substance: EMPAGLIFLOZIN
  8. RESTASIS [Concomitant]
     Active Substance: CYCLOSPORINE
  9. XIIDRA [Concomitant]
     Active Substance: LIFITEGRAST
  10. OZEMPIC [Concomitant]
     Active Substance: SEMAGLUTIDE

REACTIONS (3)
  - Product dose omission issue [Not Recovered/Not Resolved]
  - Influenza [Unknown]
  - Illness [Unknown]
